FAERS Safety Report 6589345-7 (Version None)
Quarter: 2010Q1

REPORT INFORMATION
  Report Type: 
  Country: None (occurrence: None)
  Receive Date: 20100218
  Receipt Date: 20100209
  Transmission Date: 20100710
  Serious: Yes (Other)
  Sender: FDA-Public Use
  Company Number: SE-JNJFOC-20100205048

PATIENT
  Age: 4 Month

DRUGS (2)
  1. DAKTACORT [Suspect]
     Route: 061
  2. DAKTACORT [Suspect]
     Indication: DRUG USE FOR UNKNOWN INDICATION
     Route: 061

REACTIONS (2)
  - DERMATITIS CONTACT [None]
  - THERMAL BURN [None]
